FAERS Safety Report 7717165-6 (Version None)
Quarter: 2011Q3

REPORT INFORMATION
  Report Type: 
  Country: None (occurrence: None)
  Receive Date: 20110826
  Receipt Date: 20110826
  Transmission Date: 20111222
  Serious: No
  Sender: FDA-Public Use
  Company Number: None

PATIENT
  Sex: Female

DRUGS (1)
  1. RIMSO-50 [Suspect]

REACTIONS (5)
  - LOWER LIMB FRACTURE [None]
  - CATARACT [None]
  - OSTEONECROSIS [None]
  - PITUITARY-DEPENDENT CUSHING'S SYNDROME [None]
  - HIP FRACTURE [None]
